FAERS Safety Report 5160289-0 (Version None)
Quarter: 2006Q4

REPORT INFORMATION
  Report Type: 
  Country: None (occurrence: None)
  Receive Date: 20061129
  Receipt Date: 20061120
  Transmission Date: 20070319
  Serious: Yes (Hospitalization)
  Sender: FDA-Public Use
  Company Number: FR-GLAXOSMITHKLINE-B0447267A

PATIENT
  Age: 32 Year
  Sex: Male

DRUGS (1)
  1. LAMICTAL [Suspect]
     Indication: EPILEPSY
     Dosage: 50MG PER DAY
     Route: 048
     Dates: start: 20061012, end: 20061026

REACTIONS (11)
  - C-REACTIVE PROTEIN INCREASED [None]
  - DYSPNOEA [None]
  - FACE OEDEMA [None]
  - HEADACHE [None]
  - HEPATIC ENZYME INCREASED [None]
  - HYPERSENSITIVITY [None]
  - LYMPHADENOPATHY [None]
  - OEDEMA PERIPHERAL [None]
  - PYREXIA [None]
  - RASH GENERALISED [None]
  - VISION BLURRED [None]
